FAERS Safety Report 19388104 (Version 1)
Quarter: 2021Q2

REPORT INFORMATION
  Report Type: Spontaneous
  Country: US (occurrence: US)
  Receive Date: 20210607
  Receipt Date: 20210607
  Transmission Date: 20210717
  Serious: No
  Sender: FDA-Public Use
  Company Number: US-PERRIGO-21US003073

PATIENT
  Age: 64 Year
  Sex: Female
  Weight: 64.4 kg

DRUGS (6)
  1. MIGRELIEF [Concomitant]
     Active Substance: DIETARY SUPPLEMENT
     Indication: MIGRAINE
     Dosage: PRN
     Route: 065
     Dates: start: 2019
  2. PRAVASTATIN. [Concomitant]
     Active Substance: PRAVASTATIN
     Indication: BLOOD CHOLESTEROL INCREASED
     Dosage: UNK
     Route: 065
     Dates: start: 2020
  3. VASCEPA [Concomitant]
     Active Substance: ICOSAPENT ETHYL
     Indication: CARDIAC DISORDER
     Dosage: UNK
     Route: 065
     Dates: start: 2020
  4. IRON [Concomitant]
     Active Substance: IRON
  5. MINOXIDIL. [Suspect]
     Active Substance: MINOXIDIL
     Indication: ALOPECIA
     Dosage: 1/2 CAPFUL, BID
     Route: 061
     Dates: start: 20210224, end: 20210228
  6. LOSARTAN. [Concomitant]
     Active Substance: LOSARTAN
     Indication: HYPERTENSION
     Dosage: UNK
     Route: 065
     Dates: start: 2020

REACTIONS (2)
  - Inappropriate schedule of product administration [Recovered/Resolved]
  - Headache [Not Recovered/Not Resolved]

NARRATIVE: CASE EVENT DATE: 20210224
